FAERS Safety Report 4810249-1 (Version None)
Quarter: 2005Q4

REPORT INFORMATION
  Report Type: 
  Country: None (occurrence: None)
  Receive Date: 20051026
  Receipt Date: 20051019
  Transmission Date: 20060501
  Serious: Yes (Other)
  Sender: FDA-Public Use
  Company Number: 2005AP000750

PATIENT
  Sex: Male

DRUGS (2)
  1. PAROXETINE HYDROCHLORIDE [Suspect]
     Dosage: 40MG PER DAY
     Route: 065
  2. OLANZAPINE [Concomitant]
     Dosage: 10MG PER DAY
     Route: 065

REACTIONS (10)
  - ALPHA HAEMOLYTIC STREPTOCOCCAL INFECTION [None]
  - DRUG EXPOSURE DURING PREGNANCY [None]
  - DRUG WITHDRAWAL SYNDROME NEONATAL [None]
  - FEELING JITTERY [None]
  - FOETAL DISTRESS SYNDROME [None]
  - HYPERTONIA [None]
  - HYPOGLYCAEMIA [None]
  - INAPPROPRIATE ANTIDIURETIC HORMONE SECRETION [None]
  - OPISTHOTONUS [None]
  - SALIVARY HYPERSECRETION [None]
